FAERS Safety Report 20440043 (Version 1)
Quarter: 2022Q1

REPORT INFORMATION
  Report Type: Spontaneous
  Country: None (occurrence: CA)
  Receive Date: 20220207
  Receipt Date: 20220207
  Transmission Date: 20220423
  Serious: Yes (Other)
  Sender: FDA-Public Use
  Company Number: CA-B.Braun Medical Inc.-2124695

PATIENT
  Sex: Female

DRUGS (62)
  1. ACETAMINOPHEN [Suspect]
     Active Substance: ACETAMINOPHEN
  2. ADALIMUMAB [Suspect]
     Active Substance: ADALIMUMAB
  3. ASPIRIN [Suspect]
     Active Substance: ASPIRIN
  4. ALPRAZOLAM [Suspect]
     Active Substance: ALPRAZOLAM
  5. AMOXICILLIN TRIHYDRATE [Suspect]
     Active Substance: AMOXICILLIN
  6. ATORVASTATIN CALCIUM [Suspect]
     Active Substance: ATORVASTATIN CALCIUM
  7. ATROPINE SULFATE\DIPHENOXYLATE HYDROCHLORIDE [Suspect]
     Active Substance: ATROPINE SULFATE\DIPHENOXYLATE HYDROCHLORIDE
  8. AZITHROMYCIN [Suspect]
     Active Substance: AZITHROMYCIN
  9. BETAMETHASONE DIPROPIONATE [Suspect]
     Active Substance: BETAMETHASONE DIPROPIONATE
  10. BETAMETHASONE VALERATE [Suspect]
     Active Substance: BETAMETHASONE VALERATE
  11. BISACODYL [Suspect]
     Active Substance: BISACODYL
  12. BUDESONIDE [Suspect]
     Active Substance: BUDESONIDE
  13. CALCIUM CARBONATE [Suspect]
     Active Substance: CALCIUM CARBONATE
  14. CETIRIZINE HYDROCHLORIDE [Suspect]
     Active Substance: CETIRIZINE HYDROCHLORIDE
  15. CLARITHROMYCIN [Suspect]
     Active Substance: CLARITHROMYCIN
  16. CLOTRIMAZOLE [Suspect]
     Active Substance: CLOTRIMAZOLE
  17. CUPRIC OXIDE [Suspect]
     Active Substance: CUPRIC OXIDE
  18. .ALPHA.-TOCOPHEROL, D- [Suspect]
     Active Substance: .ALPHA.-TOCOPHEROL, D-
  19. DESONIDE [Suspect]
     Active Substance: DESONIDE
  20. DIPHENHYDRAMINE HYDROCHLORIDE [Suspect]
     Active Substance: DIPHENHYDRAMINE HYDROCHLORIDE
  21. ERTAPENEM SODIUM [Suspect]
     Active Substance: ERTAPENEM SODIUM
  22. FLOVENT [Suspect]
     Active Substance: FLUTICASONE PROPIONATE
  23. FLUTICASONE FUROATE [Suspect]
     Active Substance: FLUTICASONE FUROATE
  24. GLYCERIN [Suspect]
     Active Substance: GLYCERIN
  25. GLYCERIN [Suspect]
     Active Substance: GLYCERIN
  26. GRAMICIDIN [Suspect]
     Active Substance: GRAMICIDIN
  27. HUMIRA [Suspect]
     Active Substance: ADALIMUMAB
  28. HYDROCHLOROTHIAZIDE [Suspect]
     Active Substance: HYDROCHLOROTHIAZIDE
  29. HYDROMORPHONE HYDROCHLORIDE [Suspect]
     Active Substance: HYDROMORPHONE HYDROCHLORIDE
  30. LOPERAMIDE [Suspect]
     Active Substance: LOPERAMIDE
  31. POLYETHYLENE GLYCOLS [Suspect]
     Active Substance: POLYETHYLENE GLYCOLS
  32. POLYETHYLENE GLYCOL\POTASSIUM CHLORIDE\SODIUM BICARBONATE [Suspect]
     Active Substance: POLYETHYLENE GLYCOL\POTASSIUM CHLORIDE\SODIUM BICARBONATE
  33. MAGNESIUM SULFATE [Suspect]
     Active Substance: MAGNESIUM SULFATE
  34. MESALAMINE [Suspect]
     Active Substance: MESALAMINE
  35. MESALAMINE [Suspect]
     Active Substance: MESALAMINE
  36. METRONIDAZOLE [Suspect]
     Active Substance: METRONIDAZOLE
  37. MORPHINE SULFATE [Suspect]
     Active Substance: MORPHINE SULFATE
  38. MUPIROCIN [Suspect]
     Active Substance: MUPIROCIN
  39. MUPIROCIN CALCIUM [Suspect]
     Active Substance: MUPIROCIN CALCIUM
  40. NADOLOL [Suspect]
     Active Substance: NADOLOL
  41. NEOMYCIN SULFATE [Suspect]
     Active Substance: NEOMYCIN SULFATE
  42. NICODERM CQ [Suspect]
     Active Substance: NICOTINE
  43. NICOTINE [Suspect]
     Active Substance: NICOTINE
  44. NICOTINE POLACRILEX [Suspect]
     Active Substance: NICOTINE
  45. PANTOPRAZOLE SODIUM [Suspect]
     Active Substance: PANTOPRAZOLE SODIUM
  46. POLYMYXIN B SULFATE [Suspect]
     Active Substance: POLYMYXIN B SULFATE
  47. POTASSIUM CHLORIDE [Suspect]
     Active Substance: POTASSIUM CHLORIDE
  48. PREDNISONE [Suspect]
     Active Substance: PREDNISONE
  49. PREGABALIN [Suspect]
     Active Substance: PREGABALIN
  50. REFRESH TEARS [Suspect]
     Active Substance: CARBOXYMETHYLCELLULOSE SODIUM
  51. SODIUM BICARBONATE [Suspect]
     Active Substance: SODIUM BICARBONATE
  52. SODIUM CHLORIDE [Suspect]
     Active Substance: SODIUM CHLORIDE
  53. SULFAMETHOXAZOLE\TRIMETHOPRIM [Suspect]
     Active Substance: SULFAMETHOXAZOLE\TRIMETHOPRIM
  54. TRIAMCINOLONE ACETONIDE [Suspect]
     Active Substance: TRIAMCINOLONE ACETONIDE
  55. VALSARTAN [Suspect]
     Active Substance: VALSARTAN
  56. VITAMIN D3 [Suspect]
     Active Substance: CHOLECALCIFEROL
  57. .ALPHA.-TOCOPHEROL [Suspect]
     Active Substance: .ALPHA.-TOCOPHEROL
  58. XANTOFYL PALMITATE [Suspect]
     Active Substance: XANTOFYL PALMITATE
  59. ZEAXANTHIN [Suspect]
     Active Substance: ZEAXANTHIN
  60. ZINC OXIDE [Suspect]
     Active Substance: ZINC OXIDE
  61. VALSARTAN [Concomitant]
     Active Substance: VALSARTAN
  62. CALCIUM CARBONATE\VITAMIN D [Suspect]
     Active Substance: CALCIUM CARBONATE\VITAMIN D

REACTIONS (2)
  - Drug ineffective [Unknown]
  - Macular degeneration [Unknown]
